FAERS Safety Report 6024672-3 (Version None)
Quarter: 2008Q4

REPORT INFORMATION
  Report Type: 
  Country: None (occurrence: None)
  Receive Date: 20081231
  Receipt Date: 20081226
  Transmission Date: 20090506
  Serious: Yes (Other)
  Sender: FDA-Public Use
  Company Number: CA-BRISTOL-MYERS SQUIBB COMPANY-14455729

PATIENT
  Age: 54 Year
  Sex: Male

DRUGS (11)
  1. EFAVIRENZ [Suspect]
     Indication: HIV INFECTION
     Dates: start: 20040101
  2. ATAZANAVIR [Suspect]
     Indication: HIV INFECTION
  3. CLONAZEPAM [Interacting]
     Indication: BIPOLAR DISORDER
  4. RALTEGRAVIR [Interacting]
     Indication: HIV INFECTION
     Dates: start: 20070620
  5. LAMIVUDINE [Suspect]
     Indication: HIV INFECTION
  6. LOPINAVIR AND RITONAVIR [Suspect]
     Indication: HIV INFECTION
  7. BUPROPION HCL [Interacting]
     Indication: BIPOLAR DISORDER
  8. SERTRALINE [Interacting]
     Indication: BIPOLAR DISORDER
  9. ZOPICLONE [Interacting]
     Indication: BIPOLAR DISORDER
  10. VALPROIC ACID [Interacting]
     Indication: BIPOLAR DISORDER
  11. QUETIAPINE [Interacting]
     Indication: BIPOLAR DISORDER

REACTIONS (2)
  - DEPRESSION [None]
  - DRUG INTERACTION [None]
